FAERS Safety Report 8291162-7 (Version None)
Quarter: 2012Q2

REPORT INFORMATION
  Report Type: 
  Country: None (occurrence: None)
  Receive Date: 20120417
  Receipt Date: 20120413
  Transmission Date: 20120825
  Serious: Yes (Hospitalization, Other)
  Sender: FDA-Public Use
  Company Number: US-MERCK-1106USA01626

PATIENT
  Age: 55 Year
  Sex: Female
  Weight: 57 kg

DRUGS (11)
  1. FOSAMAX [Suspect]
     Indication: OSTEOPENIA
     Route: 048
     Dates: start: 19980101, end: 20080101
  2. FOSAMAX PLUS D [Suspect]
     Indication: OSTEOPOROSIS
     Route: 048
     Dates: start: 20080101
  3. FOSAMAX [Suspect]
     Indication: OSTEOPOROSIS
     Route: 048
     Dates: start: 19980101, end: 20080101
  4. VITAMINS (UNSPECIFIED) [Concomitant]
     Route: 065
     Dates: start: 19610101
  5. KLOR-CON [Concomitant]
     Indication: MINERAL SUPPLEMENTATION
     Route: 065
     Dates: start: 19800101
  6. TRICOR [Concomitant]
     Indication: BLOOD CHOLESTEROL INCREASED
     Route: 065
     Dates: start: 19950101
  7. ALENDRONATE SODIUM [Suspect]
     Indication: OSTEOPOROSIS
     Route: 048
     Dates: start: 20091101, end: 20100101
  8. NORVASC [Concomitant]
     Indication: HYPERTENSION
     Route: 065
  9. CIPROFLOXACIN HCL [Concomitant]
     Route: 065
     Dates: start: 19950101
  10. MORPHINE [Concomitant]
     Indication: BACK PAIN
     Route: 041
     Dates: start: 20050923
  11. CORTICOSTEROIDS (UNSPECIFIED) [Concomitant]
     Indication: CROHN'S DISEASE
     Route: 048

REACTIONS (72)
  - LUMBAR SPINAL STENOSIS [None]
  - HYPERLIPIDAEMIA [None]
  - HIATUS HERNIA [None]
  - SPINAL OSTEOARTHRITIS [None]
  - PAIN [None]
  - DRUG WITHDRAWAL SYNDROME [None]
  - NEUROPATHY PERIPHERAL [None]
  - METASTASES TO BONE [None]
  - EMPHYSEMA [None]
  - BACK PAIN [None]
  - SPINAL DISORDER [None]
  - MALIGNANT MELANOMA IN SITU [None]
  - INTERVERTEBRAL DISC PROTRUSION [None]
  - LIGAMENT SPRAIN [None]
  - DYSPNOEA [None]
  - CONTUSION [None]
  - IRON DEFICIENCY ANAEMIA [None]
  - HYPERTRIGLYCERIDAEMIA [None]
  - BURSITIS [None]
  - RENAL CYST [None]
  - FRACTURE NONUNION [None]
  - FATIGUE [None]
  - DIARRHOEA [None]
  - BLOOD DISORDER [None]
  - FEMUR FRACTURE [None]
  - OSTEONECROSIS [None]
  - INTESTINAL DILATATION [None]
  - POSTMENOPAUSE [None]
  - KIDNEY INFECTION [None]
  - FALL [None]
  - POLLAKIURIA [None]
  - NECK PAIN [None]
  - SPINAL COLUMN STENOSIS [None]
  - SKIN CANCER [None]
  - OSTEOARTHRITIS [None]
  - CROHN'S DISEASE [None]
  - HERPES SIMPLEX [None]
  - INSOMNIA [None]
  - STAPHYLOCOCCAL INFECTION [None]
  - LACUNAR INFARCTION [None]
  - DEPRESSION [None]
  - CHEST PAIN [None]
  - ARTERIOSCLEROSIS [None]
  - GASTROINTESTINAL DISORDER [None]
  - HEPATOMEGALY [None]
  - HAEMATOMA [None]
  - STEROID THERAPY [None]
  - SPINAL COMPRESSION FRACTURE [None]
  - AORTIC ARTERIOSCLEROSIS [None]
  - BREAST CANCER [None]
  - CHOLELITHIASIS [None]
  - ABASIA [None]
  - ARTHROPATHY [None]
  - BONE CYST [None]
  - BONE LESION [None]
  - URINARY TRACT INFECTION [None]
  - PELVIC PAIN [None]
  - NAUSEA [None]
  - RIB FRACTURE [None]
  - RECTAL HAEMORRHAGE [None]
  - LUNG NEOPLASM [None]
  - LOW TURNOVER OSTEOPATHY [None]
  - ARTHRITIS [None]
  - INTERVERTEBRAL DISC DEGENERATION [None]
  - UTERINE LEIOMYOMA [None]
  - HAEMORRHOIDS [None]
  - EPICONDYLITIS [None]
  - WRIST FRACTURE [None]
  - DRUG HYPERSENSITIVITY [None]
  - CATARACT [None]
  - DENTAL CARIES [None]
  - ANXIETY DISORDER [None]
